FAERS Safety Report 5103786-6 (Version None)
Quarter: 2006Q3

REPORT INFORMATION
  Report Type: 
  Country: None (occurrence: None)
  Receive Date: 20060913
  Receipt Date: 20060805
  Transmission Date: 20061208
  Serious: Yes (Hospitalization, Other)
  Sender: FDA-Public Use
  Company Number: US-AMGEN-US189606

PATIENT
  Age: 60 Year
  Sex: Male

DRUGS (1)
  1. PROCRIT [Suspect]
     Indication: ANAEMIA
     Route: 058
     Dates: start: 20060612, end: 20060802

REACTIONS (5)
  - APLASIA PURE RED CELL [None]
  - BLOOD ALBUMIN DECREASED [None]
  - BONE MARROW FAILURE [None]
  - PROTEIN TOTAL DECREASED [None]
  - THERAPEUTIC RESPONSE DECREASED [None]
